FAERS Safety Report 5190321-X (Version None)
Quarter: 2006Q4

REPORT INFORMATION
  Report Type: 
  Country: None (occurrence: None)
  Receive Date: 20061222
  Receipt Date: 20060710
  Transmission Date: 20070319
  Serious: No
  Sender: FDA-Public Use
  Company Number: US-AMGEN-KDL185688

PATIENT
  Sex: Female

DRUGS (9)
  1. ARANESP [Suspect]
     Indication: RENAL FAILURE CHRONIC
     Route: 058
     Dates: start: 20030701
  2. PROGRAF [Concomitant]
  3. PREDNISONE TAB [Concomitant]
  4. NIFEDIPINE [Concomitant]
  5. MAGNESIUM CITRATE [Concomitant]
  6. LASIX [Concomitant]
  7. CELLCEPT [Concomitant]
  8. CALCITRIOL [Concomitant]
  9. LABETALOL HCL [Concomitant]

REACTIONS (2)
  - BLADDER CANCER [None]
  - THERAPEUTIC RESPONSE DECREASED [None]
